FAERS Safety Report 8516670-2 (Version None)
Quarter: 2012Q2

REPORT INFORMATION
  Report Type: 
  Country: None (occurrence: None)
  Receive Date: 20120406
  Receipt Date: 20101130
  Transmission Date: 20120825
  Serious: Yes (Death)
  Sender: FDA-Public Use
  Company Number: PHHY2010US76250

PATIENT
  Age: 66 Year
  Sex: Female

DRUGS (1)
  1. TASIGNA [Suspect]
     Indication: ACUTE LYMPHOCYTIC LEUKAEMIA
     Dosage: 400 MG, BID, ORAL
     Route: 048
     Dates: start: 20100101

REACTIONS (4)
  - DECREASED APPETITE [None]
  - NEOPLASM PROGRESSION [None]
  - BLAST CELL CRISIS [None]
  - FATIGUE [None]
